FAERS Safety Report 6349832-3 (Version None)
Quarter: 2009Q3

REPORT INFORMATION
  Report Type: 
  Country: None (occurrence: None)
  Receive Date: 20090911
  Receipt Date: 20090830
  Transmission Date: 20100115
  Serious: Yes (Hospitalization)
  Sender: FDA-Public Use
  Company Number: PHHY2009SK38823

PATIENT
  Age: 69 Year
  Sex: Female

DRUGS (9)
  1. RASILEZ [Suspect]
     Indication: BLOOD PRESSURE INADEQUATELY CONTROLLED
     Dosage: 300 MG DAILY
     Dates: start: 20080101
  2. EXFORGE [Concomitant]
     Indication: HYPERTENSION
     Dosage: 160/5 MG
  3. BISOPROLOL [Concomitant]
     Dosage: 2.5 MG
  4. INDAPAMIDE [Concomitant]
     Dosage: 1.25 MG
  5. ANOPYRIN [Concomitant]
     Dosage: 100 MG
  6. ATORVASTATIN CALCIUM [Concomitant]
     Dosage: 20 MG
  7. DETRALEX [Concomitant]
  8. EUTHYROX [Concomitant]
  9. INSULIN [Concomitant]

REACTIONS (2)
  - SURGERY [None]
  - UPPER LIMB FRACTURE [None]
